FAERS Safety Report 23273622 (Version 2)
Quarter: 2024Q4

REPORT INFORMATION
  Report Type: Spontaneous
  Country: RU (occurrence: RU)
  Receive Date: 20231207
  Receipt Date: 20241003
  Transmission Date: 20250115
  Serious: Yes (Other)
  Sender: TAKEDA
  Company Number: RU-TAKEDA-2023TUS117581

PATIENT
  Age: 47 Year
  Sex: Female
  Weight: 76 kg

DRUGS (1)
  1. ENTYVIO [Suspect]
     Active Substance: VEDOLIZUMAB
     Indication: Crohn^s disease
     Dosage: 300 MILLIGRAM
     Route: 042
     Dates: start: 20190326, end: 20231006

REACTIONS (1)
  - Drug ineffective [Unknown]
